FAERS Safety Report 9216236 (Version 1)
Quarter: 2013Q2

REPORT INFORMATION
  Report Type: Report from Study
  Country: DE (occurrence: DE)
  Receive Date: 20130408
  Receipt Date: 20130408
  Transmission Date: 20140414
  Serious: Yes (Hospitalization)
  Sender: FDA-Public Use
  Company Number: DE-SANOFI-AVENTIS-2013SA036199

PATIENT
  Age: 75 Year
  Sex: Female
  Weight: 73 kg

DRUGS (6)
  1. MULTAQ [Suspect]
     Indication: ATRIAL FIBRILLATION
     Dosage: UNIT CONT:400
     Route: 048
     Dates: start: 20120503, end: 20120831
  2. VIT K ANTAGONISTS [Concomitant]
     Indication: ANTICOAGULANT THERAPY
  3. SIMVASTATIN [Concomitant]
  4. BISOPROLOL [Concomitant]
     Indication: ATRIAL FIBRILLATION
     Dosage: UNIT CONT:5
     Route: 048
  5. OMEP [Concomitant]
     Indication: GASTRITIS
     Dosage: UNIT CONT:40
     Route: 048
  6. VALSARTAN [Concomitant]
     Indication: HYPERTENSION
     Dosage: UNIT CONT:320
     Route: 048

REACTIONS (2)
  - Syncope [Recovered/Resolved]
  - Atrial fibrillation [Recovered/Resolved]
